FAERS Safety Report 9717503 (Version 2)
Quarter: 2013Q4

REPORT INFORMATION
  Report Type: Spontaneous
  Country: US (occurrence: US)
  Receive Date: 20131127
  Receipt Date: 20131127
  Transmission Date: 20140711
  Serious: No
  Sender: FDA-Public Use
  Company Number: US-GILEAD-2009-0019819

PATIENT
  Age: 58 Year
  Sex: Female

DRUGS (13)
  1. LETAIRIS [Suspect]
     Indication: PULMONARY ARTERIAL HYPERTENSION
     Route: 048
     Dates: start: 20090108
  2. COUMADIN [Concomitant]
  3. LASIX [Concomitant]
  4. CELLCEPT [Concomitant]
  5. PRAVASTATIN SODIUM [Concomitant]
  6. METOLAZONE [Concomitant]
  7. CYCLOSPORINE [Concomitant]
  8. ADVAIR [Concomitant]
  9. POTASSIUM CHLORIDE [Concomitant]
  10. ATROVENT HFA [Concomitant]
  11. COLACE [Concomitant]
  12. CALCIUM [Concomitant]
  13. VITAMIN E [Concomitant]

REACTIONS (7)
  - Malaise [Recovered/Resolved]
  - Nausea [Recovered/Resolved]
  - Vomiting [Unknown]
  - Headache [Unknown]
  - Swelling [Unknown]
  - Weight increased [Unknown]
  - Dyspnoea [Unknown]
